FAERS Safety Report 6996893-4 (Version None)
Quarter: 2010Q3

REPORT INFORMATION
  Report Type: 
  Country: None (occurrence: None)
  Receive Date: 20100918
  Receipt Date: 20090702
  Transmission Date: 20110219
  Serious: No
  Sender: FDA-Public Use
  Company Number: US-WYE-H10186209

PATIENT
  Sex: Female

DRUGS (3)
  1. EFFEXOR XR [Suspect]
     Indication: PANIC ATTACK
     Route: 048
     Dates: start: 20040101, end: 20090501
  2. EFFEXOR XR [Suspect]
     Route: 048
     Dates: start: 20090501
  3. ADDERALL XR 10 [Concomitant]

REACTIONS (3)
  - DRUG WITHDRAWAL SYNDROME [None]
  - PANIC ATTACK [None]
  - PARAESTHESIA [None]
